FAERS Safety Report 18139620 (Version 1)
Quarter: 2020Q3

REPORT INFORMATION
  Report Type: Spontaneous
  Country: US (occurrence: US)
  Receive Date: 20200812
  Receipt Date: 20200812
  Transmission Date: 20201103
  Serious: Yes (Hospitalization)
  Sender: FDA-Public Use
  Company Number: None

PATIENT
  Age: 90 Year
  Sex: Male

DRUGS (1)
  1. LORAZEPAM (LORAZEPAM 0.5MG TAB) [Suspect]
     Active Substance: LORAZEPAM
     Indication: ANXIETY
     Route: 048
     Dates: start: 20191217, end: 20200106

REACTIONS (4)
  - Vomiting [None]
  - Nausea [None]
  - Anxiety [None]
  - Therapy change [None]

NARRATIVE: CASE EVENT DATE: 20191216
